FAERS Safety Report 20004967 (Version 1)
Quarter: 2021Q4

REPORT INFORMATION
  Report Type: Report from Study
  Country: CN (occurrence: CN)
  Receive Date: 20211027
  Receipt Date: 20211027
  Transmission Date: 20220303
  Serious: Yes (Other)
  Sender: FDA-Public Use
  Company Number: CN-UCBSA-2021049893

PATIENT
  Sex: Female

DRUGS (1)
  1. LEVETIRACETAM [Suspect]
     Active Substance: LEVETIRACETAM
     Indication: Seizure
     Dosage: 10 MILLIGRAM/KILOGRAM, 2X/DAY (BID)
     Route: 048

REACTIONS (7)
  - Premature delivery [Unknown]
  - Seizure [Unknown]
  - Placenta praevia [Unknown]
  - Gestational hypertension [Unknown]
  - Depression [Unknown]
  - Maternal exposure during pregnancy [Unknown]
  - Drug ineffective [Unknown]
